FAERS Safety Report 20848931 (Version 1)
Quarter: 2022Q2

REPORT INFORMATION
  Report Type: Spontaneous
  Country: US (occurrence: US)
  Receive Date: 20220519
  Receipt Date: 20220519
  Transmission Date: 20220720
  Serious: No
  Sender: FDA-Public Use
  Company Number: US-drreddys-SPO/USA/22/0149698

PATIENT
  Age: 27 Year
  Sex: Female

DRUGS (1)
  1. ACCUTANE [Suspect]
     Active Substance: ISOTRETINOIN
     Indication: Product used for unknown indication
     Dosage: RMA ISSUE DATE: 25 JANUARY 2022 08:19:22 AM; 23 FEBRUARY 2022 09:19:50 AM AND 28 MARCH 2022 11:50:57

REACTIONS (1)
  - Stress fracture [Unknown]
